FAERS Safety Report 5092220-0 (Version None)
Quarter: 2006Q3

REPORT INFORMATION
  Report Type: 
  Country: None (occurrence: None)
  Receive Date: 20060829
  Receipt Date: 20060818
  Transmission Date: 20061208
  Serious: Yes (Other)
  Sender: FDA-Public Use
  Company Number: DE-ABBOTT-06P-062-0341617-00

PATIENT
  Age: 3 Year
  Sex: Male

DRUGS (3)
  1. VALPROATE SODIUM [Suspect]
     Indication: CONVULSION
     Dosage: NOT REPORTED
  2. ETHOSUXIMIDE [Concomitant]
     Indication: DRUG USE FOR UNKNOWN INDICATION
  3. CLOBAZEPAM [Concomitant]
     Indication: DRUG USE FOR UNKNOWN INDICATION

REACTIONS (5)
  - CONVULSION [None]
  - GRAND MAL CONVULSION [None]
  - HEPATOTOXICITY [None]
  - REYE'S SYNDROME [None]
  - SOMNOLENCE [None]
